FAERS Safety Report 6480547-7 (Version None)
Quarter: 2009Q4

REPORT INFORMATION
  Report Type: 
  Country: None (occurrence: None)
  Receive Date: 20091208
  Receipt Date: 20091130
  Transmission Date: 20100525
  Serious: Yes (Other)
  Sender: FDA-Public Use
  Company Number: CA-SOLVAY-00309007481

PATIENT
  Sex: Female

DRUGS (1)
  1. ANDROGEL [Suspect]
     Indication: DRUG USE FOR UNKNOWN INDICATION
     Dosage: DAILY DOSE:  UNKNOWN, THERAPY DURATION 4.0 MONTHS
     Route: 062

REACTIONS (10)
  - AGGRESSION [None]
  - ANORGASMIA [None]
  - DIZZINESS [None]
  - DRUG DISPENSING ERROR [None]
  - DYSPNOEA [None]
  - DYSURIA [None]
  - HAIR GROWTH ABNORMAL [None]
  - HYPERTENSION [None]
  - IRRITABILITY [None]
  - OROPHARYNGEAL PAIN [None]
